FAERS Safety Report 22061041 (Version 5)
Quarter: 2023Q1

REPORT INFORMATION
  Report Type: Spontaneous
  Country: US (occurrence: US)
  Receive Date: 20230303
  Receipt Date: 20230324
  Transmission Date: 20230418
  Serious: Yes (Hospitalization, Other)
  Sender: FDA-Public Use
  Company Number: US-JNJFOC-20230263413

PATIENT
  Age: 42 Year
  Sex: Female
  Weight: 70 kg

DRUGS (9)
  1. VELETRI [Suspect]
     Active Substance: EPOPROSTENOL
     Indication: Pulmonary hypertension
     Route: 042
  2. VELETRI [Suspect]
     Active Substance: EPOPROSTENOL
     Route: 042
  3. VELETRI [Suspect]
     Active Substance: EPOPROSTENOL
     Dosage: DECREASED DOSE TO 56 RATE AND ONE 1.5 MG VIAL A DAY?DECREASING RATE FROM 70 TO 56 MILLILITERS PER DA
     Route: 042
  4. ORENITRAM [Suspect]
     Active Substance: TREPROSTINIL
     Indication: Pulmonary arterial hypertension
     Route: 048
     Dates: start: 20221230
  5. ORENITRAM [Suspect]
     Active Substance: TREPROSTINIL
     Indication: Pulmonary arterial hypertension
     Route: 048
  6. ORENITRAM [Suspect]
     Active Substance: TREPROSTINIL
     Route: 048
  7. TYVASO [Suspect]
     Active Substance: TREPROSTINIL
     Indication: Pulmonary arterial hypertension
     Route: 055
  8. ELIQUIS [Concomitant]
     Active Substance: APIXABAN
  9. ADEMPAS [Concomitant]
     Active Substance: RIOCIGUAT

REACTIONS (16)
  - Cardiac failure [Unknown]
  - Headache [Unknown]
  - Flushing [Unknown]
  - Seizure [Unknown]
  - Neuropathy peripheral [Not Recovered/Not Resolved]
  - Illness [Unknown]
  - Speech disorder [Unknown]
  - Procedural complication [Unknown]
  - Pain [Unknown]
  - Joint swelling [Unknown]
  - Fatigue [Unknown]
  - Depressed mood [Unknown]
  - Oedema [Unknown]
  - Musculoskeletal pain [Unknown]
  - Migraine [Unknown]
  - Adverse drug reaction [Unknown]

NARRATIVE: CASE EVENT DATE: 20230201
